FAERS Safety Report 5255387-7 (Version None)
Quarter: 2007Q1

REPORT INFORMATION
  Report Type: 
  Country: None (occurrence: None)
  Receive Date: 20070305
  Receipt Date: 20070301
  Transmission Date: 20070707
  Serious: Yes (Hospitalization)
  Sender: FDA-Public Use
  Company Number: CH-NOVOPROD-261017

PATIENT
  Sex: Female

DRUGS (1)
  1. NOVORAPID [Suspect]
     Indication: DIABETES MELLITUS INSULIN-DEPENDENT
     Dates: start: 20060301

REACTIONS (2)
  - PREGNANCY [None]
  - PREMATURE RUPTURE OF MEMBRANES [None]
